FAERS Safety Report 24807461 (Version 1)
Quarter: 2025Q1

REPORT INFORMATION
  Report Type: Spontaneous
  Country: DE (occurrence: DE)
  Receive Date: 20250105
  Receipt Date: 20250105
  Transmission Date: 20250409
  Serious: Yes (Other)
  Sender: RIGEL PHARMACEUTICALS
  Company Number: GE-RIGEL Pharmaceuticals, INC-20250100013

PATIENT
  Age: 67 Year
  Sex: Male

DRUGS (1)
  1. GAVRETO [Suspect]
     Active Substance: PRALSETINIB
     Indication: Medullary thyroid cancer
     Dates: start: 2019

REACTIONS (3)
  - Angioplasty [Unknown]
  - Peripheral vascular disorder [Unknown]
  - Impaired healing [Unknown]
